FAERS Safety Report 17337987 (Version 1)
Quarter: 2020Q1

REPORT INFORMATION
  Report Type: Spontaneous
  Country: US (occurrence: US)
  Receive Date: 20200113
  Receipt Date: 20200113
  Transmission Date: 20200409
  Serious: Yes (Other)
  Sender: FDA-Public Use
  Company Number: None

PATIENT
  Age: 85 Year
  Sex: Female
  Weight: 67.27 kg

DRUGS (2)
  1. LEVOFLOXIN [Suspect]
     Active Substance: LEVOFLOXACIN
     Dosage: ?          OTHER FREQUENCY:Q24H;?
     Route: 048
     Dates: start: 20191216, end: 20191227
  2. PREDNISONE 2.5MG [Suspect]
     Active Substance: PREDNISONE
     Route: 048

REACTIONS (1)
  - Tendon rupture [None]
